FAERS Safety Report 9308153 (Version 3)
Quarter: 2013Q3

REPORT INFORMATION
  Report Type: Report from Study
  Country: US (occurrence: US)
  Receive Date: 20130524
  Receipt Date: 20130722
  Transmission Date: 20140515
  Serious: Yes (Other)
  Sender: FDA-Public Use
  Company Number: US-BAYER-2013-038196

PATIENT
  Age: 56 Year
  Sex: Female
  Weight: 76 kg

DRUGS (9)
  1. STIVARGA [Suspect]
     Indication: RECTAL CANCER
     Dosage: 4 TABLETS (160MG) BY MOUTH DAILY FOR 21 DAYS
     Route: 048
     Dates: start: 20130320, end: 20130403
  2. STIVARGA [Suspect]
     Indication: RECTAL CANCER
     Dosage: 120 MG, QD
     Route: 048
     Dates: start: 20130410
  3. STIVARGA [Suspect]
     Indication: RECTAL CANCER
     Dosage: UNK
     Dates: start: 20130417
  4. STIVARGA [Suspect]
     Indication: RECTAL CANCER
     Dosage: 160 MG, QD
     Route: 048
     Dates: start: 2013
  5. AMLODIPINE [Concomitant]
     Dosage: 10 MG, 1 TABLET DAILY
     Route: 048
  6. HYDROCHLOROTHIAZIDE [Concomitant]
     Dosage: 12.5 MG, UNK
  7. HYDROCHLOROTHIAZIDE [Concomitant]
     Dosage: 25 MG
  8. 5 FLUOROURACIL [Concomitant]
     Dosage: 4700 MG
     Dates: start: 20090520, end: 20090922
  9. 5 FLUOROURACIL [Concomitant]
     Dosage: 5230 MG
     Dates: start: 20120924, end: 20130114

REACTIONS (26)
  - Aphagia [None]
  - Palmar-plantar erythrodysaesthesia syndrome [Recovered/Resolved]
  - Pain in extremity [Recovered/Resolved]
  - Hypoaesthesia [Recovered/Resolved]
  - Burning sensation [Recovered/Resolved]
  - Haemoptysis [None]
  - Productive cough [None]
  - Muscle spasms [Not Recovered/Not Resolved]
  - Back pain [Unknown]
  - Pain [Not Recovered/Not Resolved]
  - Vomiting [Not Recovered/Not Resolved]
  - Rash generalised [Not Recovered/Not Resolved]
  - Hypersomnia [Not Recovered/Not Resolved]
  - Weight decreased [None]
  - Pyrexia [None]
  - Chills [None]
  - Hyperhidrosis [None]
  - Dyspnoea [None]
  - Diarrhoea [None]
  - Headache [Recovered/Resolved]
  - Paraesthesia [None]
  - Neuropathy peripheral [None]
  - Abdominal pain upper [Unknown]
  - Nausea [Unknown]
  - Gastrointestinal pain [Recovered/Resolved]
  - Abdominal discomfort [Recovered/Resolved]
